FAERS Safety Report 13902489 (Version 3)
Quarter: 2017Q3

REPORT INFORMATION
  Report Type: Spontaneous
  Country: JP (occurrence: JP)
  Receive Date: 20170824
  Receipt Date: 20170831
  Transmission Date: 20171127
  Serious: Yes (Hospitalization)
  Sender: FDA-Public Use
  Company Number: JP-ABBVIE-17S-087-2079033-00

PATIENT
  Age: 65 Year
  Sex: Female

DRUGS (3)
  1. VIEKIRAX [Suspect]
     Active Substance: OMBITASVIR\PARITAPREVIR\RITONAVIR
     Indication: HEPATIC CIRRHOSIS
     Route: 048
     Dates: start: 20170804, end: 20170812
  2. SAXAGLIPTIN HYDRATE [Concomitant]
     Indication: DIABETES MELLITUS
     Route: 048
     Dates: start: 20170606
  3. VIEKIRAX [Suspect]
     Active Substance: OMBITASVIR\PARITAPREVIR\RITONAVIR
     Indication: CHRONIC HEPATITIS C

REACTIONS (2)
  - Abdominal pain upper [Unknown]
  - Jaundice [Recovering/Resolving]

NARRATIVE: CASE EVENT DATE: 20170809
